FAERS Safety Report 20559669 (Version 6)
Quarter: 2022Q4

REPORT INFORMATION
  Report Type: Report from Study
  Country: US (occurrence: US)
  Receive Date: 20220307
  Receipt Date: 20221109
  Transmission Date: 20230112
  Serious: Yes (Other)
  Sender: FDA-Public Use
  Company Number: US-002147023-NVSC2022US052715

PATIENT
  Age: 21 Year
  Sex: Female

DRUGS (4)
  1. COSENTYX [Suspect]
     Active Substance: SECUKINUMAB
     Indication: Rheumatoid arthritis
     Dosage: 300 MG, QMO
     Route: 058
     Dates: start: 20220209
  2. COSENTYX [Suspect]
     Active Substance: SECUKINUMAB
     Indication: Psoriasis
     Dosage: 300 MG, QMO
     Route: 058
     Dates: start: 20220215
  3. COSENTYX [Suspect]
     Active Substance: SECUKINUMAB
     Indication: Psoriasis
  4. AMOXICILLIN [Concomitant]
     Active Substance: AMOXICILLIN
     Indication: Product used for unknown indication
     Dosage: 500 MG (2 FOR 10 DAYS)
     Route: 065

REACTIONS (10)
  - Alcohol poisoning [Unknown]
  - Loss of consciousness [Unknown]
  - Vomiting [Unknown]
  - Hepatic enzyme increased [Unknown]
  - Skin exfoliation [Unknown]
  - Urticaria [Unknown]
  - Pruritus [Unknown]
  - Psoriasis [Unknown]
  - Oropharyngeal candidiasis [Unknown]
  - Product use in unapproved indication [Unknown]

NARRATIVE: CASE EVENT DATE: 20221031
